FAERS Safety Report 17468339 (Version 3)
Quarter: 2020Q1

REPORT INFORMATION
  Report Type: Report from Study
  Country: US (occurrence: US)
  Receive Date: 20200227
  Receipt Date: 20200305
  Transmission Date: 20200409
  Serious: Yes (Hospitalization)
  Sender: FDA-Public Use
  Company Number: NVSC2020US053709

PATIENT
  Age: 38 Year
  Sex: Female

DRUGS (1)
  1. ENTRESTO [Suspect]
     Active Substance: SACUBITRIL\VALSARTAN
     Indication: CARDIAC FAILURE
     Dosage: 1 DF (SACUBITRIL 24 MG, VALSARTAN 26 MG), BID
     Route: 048
     Dates: start: 20200211, end: 20300303

REACTIONS (5)
  - Mitral valve stenosis [Unknown]
  - Malaise [Unknown]
  - Nephrolithiasis [Unknown]
  - Abdominal pain upper [Recovered/Resolved]
  - Chest pain [Recovered/Resolved]

NARRATIVE: CASE EVENT DATE: 20200224
